FAERS Safety Report 6117401-6 (Version None)
Quarter: 2009Q1

REPORT INFORMATION
  Report Type: 
  Country: None (occurrence: None)
  Receive Date: 20090314
  Receipt Date: 20090115
  Transmission Date: 20090719
  Serious: No
  Sender: FDA-Public Use
  Company Number: US-ABBOTT-09P-163-0498187-00

PATIENT
  Sex: Female

DRUGS (10)
  1. HUMIRA [Suspect]
     Indication: RHEUMATOID ARTHRITIS
     Route: 058
     Dates: start: 20070101, end: 20081201
  2. HUMIRA [Suspect]
     Indication: SPINAL OSTEOARTHRITIS
     Route: 058
     Dates: start: 20090108
  3. METHOTREXATE [Suspect]
     Indication: RHEUMATOID ARTHRITIS
     Route: 048
  4. METHOTREXATE [Suspect]
     Indication: SPINAL OSTEOARTHRITIS
  5. VITAMINS NOS [Concomitant]
     Indication: DRUG USE FOR UNKNOWN INDICATION
  6. DEPAKOTE [Concomitant]
     Indication: BIPOLAR DISORDER
  7. WELLBUTRIN [Concomitant]
     Indication: BIPOLAR DISORDER
  8. KLONOPIN [Concomitant]
     Indication: ANXIETY DISORDER
  9. HYDROCODONE BITARTRATE [Concomitant]
     Indication: PAIN
     Dosage: 10/500MG; TAKES 4 TIMES PER DAY AS NEEDED FOR PAIN Q6 HRS
     Route: 048
  10. PERCOCET [Concomitant]
     Indication: PAIN
     Dosage: 10/500MG; 2 PER DAY PRN, 1 EVERY 12 HOURS AS NEEDED
     Route: 048

REACTIONS (3)
  - NAUSEA [None]
  - SINUSITIS [None]
  - UPPER RESPIRATORY TRACT INFECTION [None]
